FAERS Safety Report 9087650 (Version 1)
Quarter: 2013Q1

REPORT INFORMATION
  Report Type: Spontaneous
  Country: IT (occurrence: IT)
  Receive Date: 20130131
  Receipt Date: 20130131
  Transmission Date: 20140127
  Serious: Yes (Other)
  Sender: FDA-Public Use
  Company Number: IT-ELI_LILLY_AND_COMPANY-IT201301008403

PATIENT
  Age: 62 Year
  Sex: 0
  Weight: 60 kg

DRUGS (12)
  1. ALIMTA [Suspect]
     Indication: MESOTHELIOMA
     Dosage: 830 MG, UNK
     Route: 042
     Dates: start: 20121105, end: 20121105
  2. ONDANSETRON [Concomitant]
     Indication: MESOTHELIOMA
     Dosage: 8 MG, UNK
     Route: 042
     Dates: start: 20121105, end: 20121105
  3. SOLDESAM [Concomitant]
     Dosage: 8 MG, UNK
     Route: 042
     Dates: start: 20121105, end: 20121105
  4. CONTRAMAL [Concomitant]
     Dosage: 100 MG, UNK
  5. DILATREND [Concomitant]
     Dosage: 6.25 MG, UNK
     Route: 048
  6. LANOXIN [Concomitant]
     Dosage: 0.125 MG, UNK
     Route: 048
  7. ISMO [Concomitant]
  8. FLUSS [Concomitant]
  9. ONBREZ [Concomitant]
  10. FINASTID ^NEOPHARMED^ [Concomitant]
     Dosage: 5 MG, UNK
     Route: 048
  11. OMNIC [Concomitant]
     Dosage: 0.4 MG, UNK
     Route: 048
  12. GLIBOMET [Concomitant]

REACTIONS (4)
  - Mucocutaneous rash [Recovering/Resolving]
  - Fatigue [Recovering/Resolving]
  - Dyspnoea [Recovering/Resolving]
  - Back pain [Recovering/Resolving]
